FAERS Safety Report 5832208-2 (Version None)
Quarter: 2008Q3

REPORT INFORMATION
  Report Type: 
  Country: None (occurrence: None)
  Receive Date: 20080729
  Receipt Date: 20080722
  Transmission Date: 20090109
  Serious: Yes (Life-Threatening)
  Sender: FDA-Public Use
  Company Number: 001757

PATIENT
  Age: 51 Year
  Sex: Male

DRUGS (12)
  1. BUSULFEX [Suspect]
     Indication: STEM CELL TRANSPLANT
     Dosage: 3.2 DF, DAILY DOSE
     Dates: start: 20080604, end: 20080606
  2. MEROPENEM TRIHYDRATE (MEROPENEM TRIHYDRATE) [Concomitant]
  3. FOSFLUCONAZOLE (FOSFLUCONAZOLE) [Concomitant]
  4. DEXAMETHASONE SODIUM PHOSPHATE [Concomitant]
  5. LANSOPRAZOLE [Concomitant]
  6. ALLOPURINOL [Concomitant]
  7. POLAPREZINC (POLAPREZINC) [Concomitant]
  8. SPIRONOLACTONE [Concomitant]
  9. SULFAMETHOXAZOLE W TRIMETHOPRIM (SULFAMETHOXAZOLE, TRIMETHOPRIM) [Concomitant]
  10. BROTIZOLAM (BROTIZOLAM) [Concomitant]
  11. ACYCLOVIR [Concomitant]
  12. PHENYTOIN [Concomitant]

REACTIONS (17)
  - ASCITES [None]
  - ATRIAL FIBRILLATION [None]
  - BACK PAIN [None]
  - BLOOD PRESSURE DECREASED [None]
  - CARDIAC ARREST [None]
  - CARDIAC FAILURE [None]
  - CARDIOMEGALY [None]
  - CYTOKINE STORM [None]
  - LEUKAEMIA [None]
  - MALIGNANT NEOPLASM PROGRESSION [None]
  - MUSCULOSKELETAL PAIN [None]
  - PLEURAL EFFUSION [None]
  - PULMONARY CONGESTION [None]
  - PULMONARY OEDEMA [None]
  - TACHYCARDIA [None]
  - TUMOUR LYSIS SYNDROME [None]
  - VENTRICULAR FIBRILLATION [None]
